FAERS Safety Report 7963871-8 (Version None)
Quarter: 2011Q4

REPORT INFORMATION
  Report Type: 
  Country: None (occurrence: None)
  Receive Date: 20111205
  Receipt Date: 20111124
  Transmission Date: 20120403
  Serious: Yes (Other)
  Sender: FDA-Public Use
  Company Number: DKLU1075142

PATIENT
  Age: 72 Month

DRUGS (2)
  1. SABRIL [Suspect]
     Indication: INFANTILE SPASMS
  2. VALPROATE SODIUM [Concomitant]

REACTIONS (2)
  - MYDRIASIS [None]
  - RETINOPATHY [None]
